FAERS Safety Report 6089039-0 (Version None)
Quarter: 2009Q1

REPORT INFORMATION
  Report Type: 
  Country: None (occurrence: None)
  Receive Date: 20090224
  Receipt Date: 20090218
  Transmission Date: 20090719
  Serious: Yes (Congenital Anomaly)
  Sender: FDA-Public Use
  Company Number: A0769862A

PATIENT

DRUGS (4)
  1. LAMOTRIGINE [Suspect]
     Indication: BIPOLAR II DISORDER
     Dosage: 175MG PER DAY
  2. GABAPENTIN [Concomitant]
     Dosage: 1800MG PER DAY
  3. PROVIGIL [Concomitant]
     Dosage: 0VA PER DAY
  4. SYNTHROID [Concomitant]

REACTIONS (3)
  - CLEFT PALATE [None]
  - DRUG EXPOSURE DURING PREGNANCY [None]
  - MATERNAL DRUGS AFFECTING FOETUS [None]
